FAERS Safety Report 14134063 (Version 12)
Quarter: 2019Q2

REPORT INFORMATION
  Report Type: Report from Study
  Country: US (occurrence: US)
  Receive Date: 20171026
  Receipt Date: 20190521
  Transmission Date: 20190711
  Serious: Yes (Hospitalization, Other)
  Sender: FDA-Public Use
  Company Number: US-TESARO, INC.-US-2017TSO01380

PATIENT
  Age: 58 Year
  Sex: Female

DRUGS (28)
  1. PERCOCET [Concomitant]
     Active Substance: ACETAMINOPHEN\OXYCODONE HYDROCHLORIDE
     Indication: PRODUCT USED FOR UNKNOWN INDICATION
     Dosage: UNK
  2. OXYCODONE [Concomitant]
     Active Substance: OXYCODONE
     Indication: PRODUCT USED FOR UNKNOWN INDICATION
     Dosage: UNK
  3. ZEJULA [Suspect]
     Active Substance: NIRAPARIB
     Indication: MALIGNANT PERITONEAL NEOPLASM
     Dosage: 300 MG, QD
     Route: 048
     Dates: start: 20170622, end: 20170731
  4. ZEJULA [Suspect]
     Active Substance: NIRAPARIB
     Indication: NEOPLASM MALIGNANT
     Dosage: 200 MG, QD
     Route: 048
     Dates: start: 20170802
  5. ZEJULA [Suspect]
     Active Substance: NIRAPARIB
     Dosage: UNK (100 MG ALTERNATING WITH 200MG)
     Route: 048
  6. ZEJULA [Suspect]
     Active Substance: NIRAPARIB
     Dosage: 200MG ALTERNATING WITH 100MG DAILY
     Dates: start: 20181206
  7. ENALAPRIL MALEATE. [Concomitant]
     Active Substance: ENALAPRIL MALEATE
     Indication: PRODUCT USED FOR UNKNOWN INDICATION
     Dosage: UNK
  8. ROBITUSSIN (GUAIFENESIN) [Concomitant]
     Active Substance: GUAIFENESIN
     Indication: COUGH
     Dosage: UNK, BID
  9. AMOXICILLIN AND CLAVULANATE POTASSIUM [Concomitant]
     Active Substance: AMOXICILLIN\CLAVULANATE POTASSIUM
     Indication: PRODUCT USED FOR UNKNOWN INDICATION
     Dosage: UNK
  10. ZEJULA [Suspect]
     Active Substance: NIRAPARIB
     Dosage: 200 MG, QOD (ALTERNATING WITH 100MG EVERY OTHER DAY)
     Route: 048
     Dates: start: 20171128
  11. CRESTOR [Concomitant]
     Active Substance: ROSUVASTATIN CALCIUM
     Indication: PRODUCT USED FOR UNKNOWN INDICATION
     Dosage: UNK
  12. ZEJULA [Suspect]
     Active Substance: NIRAPARIB
     Dosage: 100 MG, QOD (ALTERNATING WITH 200MG EVERY OTHER DAY)
     Route: 048
     Dates: start: 20171128
  13. METFORMIN [Concomitant]
     Active Substance: METFORMIN HYDROCHLORIDE
     Indication: PRODUCT USED FOR UNKNOWN INDICATION
     Dosage: UNK
  14. SERTRALINE [Concomitant]
     Active Substance: SERTRALINE HYDROCHLORIDE
     Indication: PRODUCT USED FOR UNKNOWN INDICATION
     Dosage: UNK
  15. VITAMIN D NOS [Concomitant]
     Active Substance: VITAMIN D NOS
     Indication: PRODUCT USED FOR UNKNOWN INDICATION
     Dosage: UNK
  16. GABAPENTIN. [Concomitant]
     Active Substance: GABAPENTIN
     Indication: PRODUCT USED FOR UNKNOWN INDICATION
     Dosage: UNK
  17. MULTIVITAMIN                       /00097801/ [Concomitant]
     Active Substance: VITAMINS
     Indication: PRODUCT USED FOR UNKNOWN INDICATION
  18. MOVANTIK [Concomitant]
     Active Substance: NALOXEGOL OXALATE
     Indication: PRODUCT USED FOR UNKNOWN INDICATION
     Dosage: UNK
  19. OMEGA 3                            /01333901/ [Concomitant]
     Active Substance: FISH OIL\TOCOPHEROL
     Indication: PRODUCT USED FOR UNKNOWN INDICATION
     Dosage: UNK
  20. ZEJULA [Suspect]
     Active Substance: NIRAPARIB
     Dosage: 200 MG, QOD (ALTERNATING WITH 100MG EVERY OTHER DAY)
     Route: 048
  21. VITAMIN B12 [Concomitant]
     Active Substance: CYANOCOBALAMIN
     Indication: PRODUCT USED FOR UNKNOWN INDICATION
     Dosage: UNK
  22. RELISTOR [Concomitant]
     Active Substance: METHYLNALTREXONE BROMIDE
     Indication: PRODUCT USED FOR UNKNOWN INDICATION
     Dosage: UNK
  23. ZEJULA [Suspect]
     Active Substance: NIRAPARIB
     Indication: OVARIAN CANCER
     Dosage: 200 MG, QD
     Route: 048
  24. ZEJULA [Suspect]
     Active Substance: NIRAPARIB
     Dosage: 100 MG, QOD  (ALTERNATING WITH 200MG EVERY OTHER DAY)
     Route: 048
  25. LIPITOR [Concomitant]
     Active Substance: ATORVASTATIN CALCIUM
     Indication: PRODUCT USED FOR UNKNOWN INDICATION
     Dosage: UNK
  26. LORAZEPAM. [Concomitant]
     Active Substance: LORAZEPAM
     Indication: PRODUCT USED FOR UNKNOWN INDICATION
     Dosage: UNK
  27. MELOXICAM. [Concomitant]
     Active Substance: MELOXICAM
     Indication: PRODUCT USED FOR UNKNOWN INDICATION
     Dosage: UNK
  28. FISH OIL [Concomitant]
     Active Substance: FISH OIL
     Indication: PRODUCT USED FOR UNKNOWN INDICATION
     Dosage: UNK

REACTIONS (53)
  - Balance disorder [Not Recovered/Not Resolved]
  - Pruritus [Unknown]
  - Abnormal faeces [Unknown]
  - Toothache [Unknown]
  - Insomnia [Unknown]
  - Contusion [Unknown]
  - Pain [Unknown]
  - Pain in extremity [Unknown]
  - Flatulence [Not Recovered/Not Resolved]
  - Stomatitis [Unknown]
  - Vomiting [Not Recovered/Not Resolved]
  - Haematochezia [Unknown]
  - Hernia [Unknown]
  - Blood glucose increased [Unknown]
  - Somnolence [Unknown]
  - Hyperaesthesia teeth [Unknown]
  - Renal disorder [Unknown]
  - Anaemia [Unknown]
  - Fatigue [Not Recovered/Not Resolved]
  - Arthralgia [Unknown]
  - Myalgia [Unknown]
  - Depression [Unknown]
  - Product use in unapproved indication [Unknown]
  - Musculoskeletal pain [Unknown]
  - Erythema [Unknown]
  - Cough [Unknown]
  - Dizziness [Unknown]
  - Herpes zoster [Unknown]
  - Tooth injury [Unknown]
  - Emotional distress [Unknown]
  - Glycosylated haemoglobin increased [Unknown]
  - Constipation [Unknown]
  - Haemoglobin decreased [Unknown]
  - Dyspepsia [Unknown]
  - Renal function test abnormal [Unknown]
  - Sneezing [Unknown]
  - Asthenia [Unknown]
  - Headache [Not Recovered/Not Resolved]
  - Dyspnoea [Unknown]
  - Inappropriate schedule of product administration [Unknown]
  - Rhinorrhoea [Unknown]
  - Memory impairment [Unknown]
  - Nausea [Not Recovered/Not Resolved]
  - Nasopharyngitis [Not Recovered/Not Resolved]
  - Dry mouth [Unknown]
  - Gastrooesophageal reflux disease [Not Recovered/Not Resolved]
  - Stomach mass [Unknown]
  - Food craving [Unknown]
  - Dry throat [Recovered/Resolved]
  - Loss of personal independence in daily activities [Unknown]
  - Faeces soft [Unknown]
  - Abdominal pain upper [Unknown]
  - Weight decreased [Unknown]

NARRATIVE: CASE EVENT DATE: 20171024
